FAERS Safety Report 8534721 (Version 2)
Quarter: 2012Q4

REPORT INFORMATION
  Report Type: 
  Country: US (occurrence: US)
  Receive Date: 20120427
  Receipt Date: 20120926
  Transmission Date: 20130627
  Serious: Yes (Death, Hospitalization)
  Sender: FDA-Public Use
  Company Number: US-BAYER-2012-040493

PATIENT
  Age: 38 Year
  Sex: Female
  Weight: 97.51 kg

DRUGS (36)
  1. YAZ [Suspect]
     Indication: ACNE
     Dosage: UNK
     Dates: start: 20090610, end: 20100323
  2. YAZ [Suspect]
     Indication: PREMENSTRUAL SYNDROME
  3. PREDNISONE [Concomitant]
     Dosage: 10 mg, UNK
     Route: 048
     Dates: start: 20091210, end: 20100205
  4. AMBIEN [Concomitant]
     Indication: SLEEP DISORDER THERAPY
     Dosage: 12.5 mg, UNK
     Route: 048
     Dates: start: 20100124, end: 20100317
  5. AMBIEN [Concomitant]
     Indication: SLEEP DISORDER THERAPY
     Dosage: UNK
     Dates: end: 201004
  6. CELEBREX [Concomitant]
     Indication: ARTHRITIS
     Dosage: 200 mg, UNK
     Route: 048
     Dates: start: 20100124, end: 201004
  7. FLUCONAZOLE [Concomitant]
     Indication: ANTIFUNGAL TREATMENT
     Dosage: 200 mg, UNK
     Route: 048
     Dates: start: 200912, end: 201004
  8. LEVAQUIN [Concomitant]
     Dosage: 500 mg, UNK
     Route: 048
     Dates: start: 20100129
  9. RYZOLT [Concomitant]
     Indication: PAIN
     Dosage: 200 mg, UNK
     Route: 048
     Dates: start: 20100207, end: 201004
  10. CARISOPRODOL [Concomitant]
     Indication: PAIN MANAGEMENT
     Dosage: 350 mg, UNK
     Route: 048
     Dates: start: 20091230, end: 20100312
  11. CARISOPRODOL [Concomitant]
     Indication: PAIN MANAGEMENT
     Dosage: UNK
     Dates: start: 201002, end: 201004
  12. OYXCOD APAP [Concomitant]
     Dosage: 7.5-325 tab
     Route: 048
     Dates: start: 20100211
  13. PROMETHAZINE [Concomitant]
     Dosage: 25 mg, UNK
     Route: 048
     Dates: start: 20100211
  14. HYDROCODONE W/APAP [Concomitant]
     Dosage: 5-500mg
     Route: 048
     Dates: start: 20100317
  15. METRONIDAZOLE [Concomitant]
     Indication: ANTIBIOTIC THERAPY
     Dosage: 500 mg, UNK
     Route: 048
     Dates: start: 20091224, end: 20100323
  16. NSAID^S [Concomitant]
     Indication: PAIN
     Dosage: UNK
     Dates: start: 20100315
  17. LYRICA [Concomitant]
  18. TRAMADOL [Concomitant]
  19. MUSCLE RELAXANTS [Concomitant]
  20. VERSED [Concomitant]
  21. FENTANYL [Concomitant]
  22. PROTONIX [Concomitant]
  23. EPOETIN ALFA [Concomitant]
  24. PROCRIT [Concomitant]
  25. ZOSYN [Concomitant]
  26. PARENTAL ADULT NUTRITION [Concomitant]
  27. VANCOMYCIN [Concomitant]
  28. MAGNESIUM [Concomitant]
  29. PROPOFOL [Concomitant]
  30. INSULIN [Concomitant]
  31. TOBRAMYCIN [Concomitant]
  32. LEVOPHEN [Concomitant]
  33. DOPAMINE [Concomitant]
  34. HYDROCODONE [Concomitant]
     Indication: PAIN MANAGEMENT
     Dosage: UNK
     Dates: start: 201003, end: 201004
  35. EPINEPHRINE [Concomitant]
  36. NEO-SYNEPHRINE [PHENYLEPHRINE HYDROCHLORIDE] [Concomitant]

REACTIONS (5)
  - Pulmonary embolism [Fatal]
  - Deep vein thrombosis [Fatal]
  - Vena cava thrombosis [Fatal]
  - Injury [None]
  - Pain [None]
